FAERS Safety Report 17345771 (Version 1)
Quarter: 2020Q1

REPORT INFORMATION
  Report Type: Spontaneous
  Country: AU (occurrence: AU)
  Receive Date: 20200129
  Receipt Date: 20200129
  Transmission Date: 20200409
  Serious: Yes (Other)
  Sender: FDA-Public Use
  Company Number: AU-SUNOVION-2020DSP001202

PATIENT
  Age: 18 Year
  Sex: Female

DRUGS (1)
  1. LATUDA [Suspect]
     Active Substance: LURASIDONE HYDROCHLORIDE
     Indication: PRODUCT USED FOR UNKNOWN INDICATION
     Dosage: 40 MG
     Route: 048

REACTIONS (5)
  - Psychotic disorder [Unknown]
  - Autism spectrum disorder [Unknown]
  - Nausea [Unknown]
  - Blood prolactin increased [Unknown]
  - Headache [Unknown]
